FAERS Safety Report 5027182-5 (Version None)
Quarter: 2006Q2

REPORT INFORMATION
  Report Type: 
  Country: None (occurrence: None)
  Receive Date: 20060501
  Receipt Date: 20060117
  Transmission Date: 20061013
  Serious: No
  Sender: FDA-Public Use
  Company Number: 2006PV007176

PATIENT
  Age: 49 Year
  Sex: Female
  Weight: 96.1626 kg

DRUGS (2)
  1. SYMLIN [Suspect]
     Indication: DIABETES MELLITUS INSULIN-DEPENDENT
     Dosage: 60 MCG;TID;SC
     Route: 058
     Dates: start: 20050601
  2. HUMALOG PUMP [Concomitant]

REACTIONS (1)
  - WEIGHT DECREASED [None]
